FAERS Safety Report 9067242 (Version 3)
Quarter: 2013Q2

REPORT INFORMATION
  Report Type: Report from Study
  Country: CZ (occurrence: CZ)
  Receive Date: 20130214
  Receipt Date: 20130425
  Transmission Date: 20140414
  Serious: Yes (Hospitalization)
  Sender: FDA-Public Use
  Company Number: CZ-ABBOTT-13P-217-1048396-00

PATIENT
  Age: 60 Year
  Sex: Male

DRUGS (12)
  1. HUMIRA [Suspect]
     Indication: RHEUMATOID ARTHRITIS
     Route: 058
     Dates: start: 20120103, end: 20130128
  2. ARAVA [Concomitant]
     Indication: RHEUMATOID ARTHRITIS
     Dates: start: 2007
  3. MEDROL [Concomitant]
     Indication: RHEUMATOID ARTHRITIS
     Dates: start: 2011
  4. SERTRALIN [Concomitant]
     Indication: ANTIDEPRESSANT THERAPY
     Dates: start: 1992
  5. LEXAURIN [Concomitant]
     Indication: ANXIETY
     Dates: start: 1992
  6. DIAPREL [Concomitant]
     Indication: DIABETES MELLITUS
     Dates: start: 200112
  7. PROSTAMOL [Concomitant]
     Indication: BENIGN PROSTATIC HYPERPLASIA
     Dates: start: 2009
  8. NOVALGIN [Concomitant]
     Indication: RHEUMATOID ARTHRITIS
     Dates: start: 201108
  9. NOVALGIN [Concomitant]
     Indication: BACK PAIN
     Dates: start: 20120612
  10. PRENESSA [Concomitant]
     Indication: HYPERTENSION
     Dates: start: 2009
  11. WARFARIN [Concomitant]
     Indication: THROMBOSIS
     Dates: start: 201108
  12. WARFARIN [Concomitant]
     Indication: PULMONARY EMBOLISM

REACTIONS (1)
  - Anxiety [Not Recovered/Not Resolved]
